FAERS Safety Report 24041119 (Version 1)
Quarter: 2024Q3

REPORT INFORMATION
  Report Type: Spontaneous
  Country: US (occurrence: None)
  Receive Date: 20240702
  Receipt Date: 20240702
  Transmission Date: 20241016
  Serious: Yes (Hospitalization)
  Sender: Public
  Company Number: None

PATIENT
  Age: 18 Year
  Sex: Female
  Weight: 79.8 kg

DRUGS (6)
  1. DACARBAZINE [Suspect]
     Active Substance: DACARBAZINE
     Dates: end: 20240528
  2. DOXORUBICIN HYDROCHLORIDE [Suspect]
     Active Substance: DOXORUBICIN HYDROCHLORIDE
     Dates: end: 20240528
  3. VINBLASTINE SULFATE [Suspect]
     Active Substance: VINBLASTINE SULFATE
     Dates: end: 20240528
  4. AYGESTIN [Concomitant]
     Active Substance: NORETHINDRONE ACETATE
  5. LUPRON [Concomitant]
     Active Substance: LEUPROLIDE ACETATE
  6. HEPARIN [Concomitant]
     Active Substance: HEPARIN SODIUM

REACTIONS (9)
  - Back pain [None]
  - Pulmonary embolism [None]
  - Pulmonary hypertension [None]
  - Pulmonary artery thrombosis [None]
  - Headache [None]
  - Dizziness [None]
  - Vision blurred [None]
  - Cerebral haemorrhage [None]
  - Alanine aminotransferase increased [None]

NARRATIVE: CASE EVENT DATE: 20240608
